FAERS Safety Report 13908359 (Version 3)
Quarter: 2017Q4

REPORT INFORMATION
  Report Type: Spontaneous
  Country: BR (occurrence: BR)
  Receive Date: 20170826
  Receipt Date: 20171215
  Transmission Date: 20180320
  Serious: Yes (Hospitalization, Other)
  Sender: FDA-Public Use
  Company Number: BR-AMGEN-BRASP2017128575

PATIENT
  Age: 41 Year
  Sex: Female

DRUGS (3)
  1. METHOTREXATE. [Concomitant]
     Active Substance: METHOTREXATE
     Dosage: UNK
     Dates: start: 2013
  2. ENBREL [Suspect]
     Active Substance: ETANERCEPT
     Indication: RHEUMATOID ARTHRITIS
     Dosage: UNK UNK, QWK
     Route: 065
  3. TAMISA [Interacting]
     Active Substance: ETHINYL ESTRADIOL\GESTODENE
     Indication: CONTRACEPTION
     Dosage: UNK
     Route: 065
     Dates: start: 2007

REACTIONS (4)
  - Abortion [Recovered/Resolved]
  - Unintended pregnancy [Recovered/Resolved]
  - Feeling abnormal [Recovered/Resolved]
  - Inhibitory drug interaction [Unknown]

NARRATIVE: CASE EVENT DATE: 201605
